FAERS Safety Report 25626069 (Version 1)
Quarter: 2025Q3

REPORT INFORMATION
  Report Type: Report from Study
  Country: US (occurrence: US)
  Receive Date: 20250731
  Receipt Date: 20250731
  Transmission Date: 20251021
  Serious: Yes (Other)
  Sender: ALEXION PHARMACEUTICALS
  Company Number: US-AstraZeneca-CH-00920358A

PATIENT
  Sex: Female

DRUGS (2)
  1. ANIFROLUMAB [Suspect]
     Active Substance: ANIFROLUMAB
     Indication: Systemic lupus erythematosus
     Dosage: 300 MILLIGRAM, Q4W
  2. HALOBETASOL [Concomitant]
     Active Substance: HALOBETASOL
     Indication: Psoriasis
     Route: 065

REACTIONS (2)
  - Seasonal allergy [Unknown]
  - Dementia [Unknown]
